FAERS Safety Report 10778901 (Version 1)
Quarter: 2015Q1

REPORT INFORMATION
  Report Type: Spontaneous
  Country: US (occurrence: None)
  Receive Date: 20150205
  Receipt Date: 20150205
  Transmission Date: 20150721
  Serious: Yes (Hospitalization)
  Sender: FDA-Public Use
  Company Number: None

PATIENT
  Age: 66 Year
  Sex: Male
  Weight: 110.7 kg

DRUGS (1)
  1. CIPROFLOXACIN. [Suspect]
     Active Substance: CIPROFLOXACIN
     Indication: URINARY TRACT INFECTION
     Route: 048
     Dates: start: 20140724, end: 20140803

REACTIONS (4)
  - Dizziness [None]
  - Nausea [None]
  - Dyspnoea [None]
  - Abdominal pain [None]

NARRATIVE: CASE EVENT DATE: 20140803
